FAERS Safety Report 10044834 (Version 1)
Quarter: 2014Q1

REPORT INFORMATION
  Report Type: Spontaneous
  Country: IT (occurrence: IT)
  Receive Date: 20140328
  Receipt Date: 20140328
  Transmission Date: 20141002
  Serious: Yes (Hospitalization)
  Sender: FDA-Public Use
  Company Number: IT-BAXTER-2014BAX015164

PATIENT
  Age: 9 Day
  Sex: Male

DRUGS (2)
  1. METRONIDAZOLO BAXTER 0,5% [Suspect]
     Indication: NECROTISING COLITIS
     Route: 065
     Dates: start: 20140302, end: 20140319
  2. RANIDIL [Suspect]
     Indication: PRODUCT USED FOR UNKNOWN INDICATION
     Route: 065
     Dates: start: 20140303, end: 20140312

REACTIONS (1)
  - Constipation [Recovering/Resolving]
